FAERS Safety Report 9351185 (Version 1)
Quarter: 2013Q2

REPORT INFORMATION
  Report Type: Spontaneous
  Country: US (occurrence: US)
  Receive Date: 20130617
  Receipt Date: 20130617
  Transmission Date: 20140414
  Serious: Yes (Hospitalization, Other)
  Sender: FDA-Public Use
  Company Number: US-PFIZER INC-2013153429

PATIENT
  Age: 61 Year
  Sex: Female
  Weight: 74.83 kg

DRUGS (3)
  1. LYRICA [Suspect]
     Indication: NEURALGIA
     Dosage: 75 MG, UNK
     Dates: start: 2009
  2. ALLEGRA [Concomitant]
     Dosage: UNK
  3. PEPCID [Concomitant]
     Dosage: UNK

REACTIONS (11)
  - Malaise [Unknown]
  - Abscess intestinal [Unknown]
  - Furuncle [Unknown]
  - Thrombosis [Unknown]
  - Renal disorder [Unknown]
  - Renal cancer [Unknown]
  - Colitis [Unknown]
  - Kidney infection [Unknown]
  - Drug ineffective [Unknown]
  - Paraesthesia [Unknown]
  - Burning sensation [Unknown]
